FAERS Safety Report 7778666-8 (Version None)
Quarter: 2011Q3

REPORT INFORMATION
  Report Type: 
  Country: None (occurrence: None)
  Receive Date: 20110926
  Receipt Date: 20110915
  Transmission Date: 20111222
  Serious: Yes (Other)
  Sender: FDA-Public Use
  Company Number: US-BAYER-2011-086638

PATIENT
  Age: 20 Year
  Sex: Female

DRUGS (2)
  1. MIRENA [Suspect]
     Dosage: 20 MCG/24HR, UNK
     Dates: start: 20110901
  2. DEPO SHOT [Concomitant]
     Dosage: UNK
     Dates: start: 20110901

REACTIONS (3)
  - POST PROCEDURAL HAEMORRHAGE [None]
  - ABDOMINAL PAIN LOWER [None]
  - PROCEDURAL PAIN [None]
